FAERS Safety Report 17693175 (Version 1)
Quarter: 2020Q2

REPORT INFORMATION
  Report Type: Spontaneous
  Country: JP (occurrence: JP)
  Receive Date: 20200422
  Receipt Date: 20200422
  Transmission Date: 20200714
  Serious: Yes (Other)
  Sender: FDA-Public Use
  Company Number: JP-ASTRAZENECA-2019SE89110

PATIENT
  Age: 69 Year
  Sex: Male

DRUGS (1)
  1. IMFINZI [Suspect]
     Active Substance: DURVALUMAB
     Indication: NON-SMALL CELL LUNG CANCER
     Route: 041
     Dates: start: 20190418, end: 202003

REACTIONS (4)
  - Dermatitis psoriasiform [Unknown]
  - Malignant neoplasm progression [Unknown]
  - Interstitial lung disease [Unknown]
  - Erythema annulare [Unknown]

NARRATIVE: CASE EVENT DATE: 20190610
